FAERS Safety Report 23681634 (Version 1)
Quarter: 2024Q1

REPORT INFORMATION
  Report Type: Report from Study
  Country: US (occurrence: US)
  Receive Date: 20240328
  Receipt Date: 20240328
  Transmission Date: 20240409
  Serious: Yes (Hospitalization)
  Sender: FDA-Public Use
  Company Number: US-AUROBINDO-AUR-APL-2024-013117

PATIENT
  Age: 67 Year
  Sex: Female
  Weight: 170.2 kg

DRUGS (2)
  1. BELINOSTAT [Suspect]
     Active Substance: BELINOSTAT
     Indication: Product used for unknown indication
     Dosage: UNK (18850 MG+72000 MILLIGRAM)
     Route: 065
     Dates: start: 20240305, end: 20240307
  2. TAZEMETOSTAT [Suspect]
     Active Substance: TAZEMETOSTAT
     Dates: start: 20240305

REACTIONS (1)
  - Pain in extremity [Unknown]

NARRATIVE: CASE EVENT DATE: 20240306
